FAERS Safety Report 8834611 (Version 4)
Quarter: 2013Q2

REPORT INFORMATION
  Report Type: Spontaneous
  Country: GB (occurrence: GB)
  Receive Date: 20121010
  Receipt Date: 20130419
  Transmission Date: 20140414
  Serious: Yes (Disabling)
  Sender: FDA-Public Use
  Company Number: GB-ROCHE-1143330

PATIENT
  Sex: Female
  Weight: 70 kg

DRUGS (5)
  1. XOLAIR [Suspect]
     Indication: ASTHMA
     Route: 058
     Dates: start: 2008, end: 201205
  2. XOLAIR [Suspect]
     Indication: ASTHMA
  3. LODINE [Concomitant]
     Route: 065
  4. HYDROCORTISONE [Concomitant]
     Route: 065
  5. SALBUTAMOL [Concomitant]

REACTIONS (16)
  - Back pain [Recovering/Resolving]
  - Arthralgia [Recovered/Resolved]
  - Pain [Recovered/Resolved]
  - Muscular weakness [Recovered/Resolved]
  - Feeling abnormal [Recovering/Resolving]
  - Serum sickness [Recovering/Resolving]
  - Multiple allergies [Not Recovered/Not Resolved]
  - Asthma [Not Recovered/Not Resolved]
  - Adrenal insufficiency [Not Recovered/Not Resolved]
  - Hypothyroidism [Not Recovered/Not Resolved]
  - Muscle strain [Recovering/Resolving]
  - Dizziness [Recovered/Resolved]
  - Fatigue [Recovered/Resolved]
  - Visual impairment [Recovering/Resolving]
  - Muscle tightness [Recovered/Resolved]
  - Sinus disorder [Recovering/Resolving]
